FAERS Safety Report 5405170-4 (Version None)
Quarter: 2007Q3

REPORT INFORMATION
  Report Type: 
  Country: None (occurrence: None)
  Receive Date: 20070803
  Receipt Date: 20070726
  Transmission Date: 20080115
  Serious: Yes (Hospitalization)
  Sender: FDA-Public Use
  Company Number: BR-ABBOTT-07P-020-0375972-00

PATIENT
  Sex: Female
  Weight: 70 kg

DRUGS (2)
  1. HUMIRA [Suspect]
     Indication: PSORIATIC ARTHROPATHY
     Route: 058
     Dates: start: 20070601
  2. DEXTROMETHORPHAN/PARACETAMOL [Concomitant]
     Indication: PAIN
     Route: 048

REACTIONS (4)
  - PHLEBITIS [None]
  - PYREXIA [None]
  - WOUND [None]
  - WOUND COMPLICATION [None]
